FAERS Safety Report 9846857 (Version 1)
Quarter: 2013Q4

REPORT INFORMATION
  Report Type: Spontaneous
  Country: US (occurrence: None)
  Receive Date: 20131219
  Receipt Date: 20131219
  Transmission Date: 20140711
  Serious: Yes (Hospitalization)
  Sender: FDA-Public Use
  Company Number: 163-20785-13071662

PATIENT
  Age: 74 Year
  Sex: Male

DRUGS (2)
  1. THALOMID (THALIDOMIDE) (50 MILLIGRAM, CAPSULES) [Suspect]
     Indication: PLASMA CELL MYELOMA
     Dosage: 200 MG , 1 IN 1 D, PO  JUN /2013 - UNKNOWN  THERAPY DATES
     Route: 048
     Dates: start: 201306
  2. CHEMOTHERAPY (CHEMOTHERAPEUTICS) (INJECTION) [Concomitant]

REACTIONS (1)
  - Plasma cell myeloma [None]
